FAERS Safety Report 6770602-6 (Version None)
Quarter: 2010Q2

REPORT INFORMATION
  Report Type: 
  Country: None (occurrence: None)
  Receive Date: 20100615
  Receipt Date: 20100604
  Transmission Date: 20101027
  Serious: Yes (Hospitalization)
  Sender: FDA-Public Use
  Company Number: TR-WATSON-2010-07694

PATIENT
  Age: 76 Year
  Sex: Female

DRUGS (1)
  1. CIPROFLOXACIN HCL [Suspect]
     Indication: OROPHARYNGEAL PAIN
     Dosage: UNK

REACTIONS (2)
  - FOREIGN BODY ASPIRATION [None]
  - RESPIRATORY FAILURE [None]
